FAERS Safety Report 5929385-1 (Version None)
Quarter: 2008Q4

REPORT INFORMATION
  Report Type: 
  Country: None (occurrence: None)
  Receive Date: 20081024
  Receipt Date: 20081014
  Transmission Date: 20090506
  Serious: Yes (Other)
  Sender: FDA-Public Use
  Company Number: US-JNJFOC-20080801467

PATIENT
  Sex: Female

DRUGS (11)
  1. REMICADE [Suspect]
     Route: 042
  2. REMICADE [Suspect]
     Route: 042
  3. REMICADE [Suspect]
     Route: 042
  4. REMICADE [Suspect]
     Route: 042
  5. REMICADE [Suspect]
     Indication: RHEUMATOID ARTHRITIS
     Route: 042
  6. METHOTREXATE [Concomitant]
  7. BENADRYL [Concomitant]
  8. BENADRYL [Concomitant]
     Indication: PREMEDICATION
  9. TYLENOL [Concomitant]
     Route: 048
  10. TYLENOL [Concomitant]
     Indication: PREMEDICATION
     Route: 048
  11. SOLU-MEDROL [Concomitant]
     Indication: PREMEDICATION
     Route: 042

REACTIONS (7)
  - DYSPHAGIA [None]
  - HYPOAESTHESIA ORAL [None]
  - INFUSION RELATED REACTION [None]
  - LIVEDO RETICULARIS [None]
  - NAUSEA [None]
  - RASH [None]
  - TREMOR [None]
